FAERS Safety Report 25684916 (Version 1)
Quarter: 2025Q3

REPORT INFORMATION
  Report Type: Spontaneous
  Country: US (occurrence: None)
  Receive Date: 20250814
  Receipt Date: 20250814
  Transmission Date: 20251020
  Serious: Yes (Hospitalization)
  Sender: FDA-CTU
  Company Number: None

PATIENT
  Age: 54 Year
  Sex: Female

DRUGS (1)
  1. RINVOQ [Suspect]
     Active Substance: UPADACITINIB
     Dosage: 15MG DAILY

REACTIONS (13)
  - Intracranial pressure increased [None]
  - Anaphylactic shock [None]
  - Loss of consciousness [None]
  - Head injury [None]
  - Weight decreased [None]
  - Tinnitus [None]
  - Contusion [None]
  - Muscular weakness [None]
  - Myalgia [None]
  - Arthralgia [None]
  - Bone pain [None]
  - Vulvovaginal pruritus [None]
  - Vulvovaginal swelling [None]
